FAERS Safety Report 18671745 (Version 1)
Quarter: 2020Q4

REPORT INFORMATION
  Report Type: Spontaneous
  Country: US (occurrence: US)
  Receive Date: 20201229
  Receipt Date: 20201229
  Transmission Date: 20210114
  Serious: No
  Sender: FDA-Public Use
  Company Number: US-009507513-2012USA011046

PATIENT
  Age: 84 Year
  Sex: Female

DRUGS (2)
  1. REMERON [Suspect]
     Active Substance: MIRTAZAPINE
     Indication: DYSPEPSIA
     Dosage: 30 MILLIGRAM, EVERY BEDTIME (QHS)
  2. BUSPIRONE HYDROCHLORIDE. [Concomitant]
     Active Substance: BUSPIRONE HYDROCHLORIDE
     Indication: DYSPEPSIA
     Dosage: 10 MILLIGRAM, TID

REACTIONS (1)
  - Product use in unapproved indication [Unknown]
